FAERS Safety Report 16284891 (Version 2)
Quarter: 2019Q2

REPORT INFORMATION
  Report Type: Other
  Country: RO (occurrence: RO)
  Receive Date: 20190508
  Receipt Date: 20190520
  Transmission Date: 20190711
  Serious: Yes (Hospitalization)
  Sender: FDA-Public Use
  Company Number: RO-CELLTRION INC.-2019RO020769

PATIENT

DRUGS (1)
  1. TRASTUZUMAB (UNKNOWN) [Suspect]
     Active Substance: TRASTUZUMAB
     Indication: BREAST CANCER
     Dosage: 600 MG, EVERY 3 WEEKS
     Route: 058
     Dates: start: 20180523, end: 201903

REACTIONS (6)
  - Cardiac failure [Unknown]
  - Malaise [Unknown]
  - Product use issue [Unknown]
  - Swelling face [Unknown]
  - Peripheral swelling [Unknown]
  - Dizziness [Unknown]
